FAERS Safety Report 12448390 (Version 1)
Quarter: 2016Q2

REPORT INFORMATION
  Report Type: Spontaneous
  Country: JP (occurrence: JP)
  Receive Date: 20160608
  Receipt Date: 20160608
  Transmission Date: 20160815
  Serious: Yes (Other)
  Sender: FDA-Public Use
  Company Number: PHJP2016JP015123

PATIENT
  Age: 61 Year

DRUGS (1)
  1. GLIVEC [Suspect]
     Active Substance: IMATINIB MESYLATE
     Indication: CHRONIC MYELOID LEUKAEMIA
     Dosage: UNK
     Route: 048

REACTIONS (4)
  - Papillary thyroid cancer [Unknown]
  - Cholelithiasis [Unknown]
  - Impaired healing [Unknown]
  - Second primary malignancy [Unknown]
